FAERS Safety Report 15590917 (Version 1)
Quarter: 2018Q4

REPORT INFORMATION
  Report Type: Spontaneous
  Country: US (occurrence: US)
  Receive Date: 20181101
  Receipt Date: 20181101
  Transmission Date: 20190205
  Serious: No
  Sender: FDA-Public Use
  Company Number: None

PATIENT
  Age: 74 Year
  Sex: Female
  Weight: 77.56 kg

DRUGS (4)
  1. OLUMIANT [Suspect]
     Active Substance: BARICITINIB
     Indication: RHEUMATOID ARTHRITIS
     Route: 048
     Dates: start: 201809
  2. OLUMIANT [Suspect]
     Active Substance: BARICITINIB
     Indication: RHEUMATOID FACTOR POSITIVE
     Route: 048
     Dates: start: 201809
  3. H.P. ACTHAR [Suspect]
     Active Substance: CORTICOTROPIN
     Indication: RHEUMATOID ARTHRITIS
     Route: 058
     Dates: start: 201803
  4. H.P. ACTHAR [Suspect]
     Active Substance: CORTICOTROPIN
     Indication: RHEUMATOID FACTOR POSITIVE
     Route: 058
     Dates: start: 201803

REACTIONS (1)
  - Arthralgia [None]
